FAERS Safety Report 9485142 (Version 1)
Quarter: 2013Q3

REPORT INFORMATION
  Report Type: Spontaneous
  Country: FR (occurrence: FR)
  Receive Date: 20130828
  Receipt Date: 20130828
  Transmission Date: 20140515
  Serious: Yes (Hospitalization, Other)
  Sender: FDA-Public Use
  Company Number: FR-PFIZER INC-2013246311

PATIENT
  Age: 72 Year
  Sex: Female

DRUGS (6)
  1. EFFEXOR [Suspect]
     Dosage: UNK
     Route: 048
     Dates: end: 2013
  2. SEROPLEX [Suspect]
     Indication: MAJOR DEPRESSION
     Dosage: 10 MG, DAILY
     Route: 048
     Dates: start: 2013, end: 201307
  3. COVERSYL [Concomitant]
     Dosage: 2.5 MG, DAILY
     Route: 048
  4. STILNOX [Concomitant]
     Indication: MAJOR DEPRESSION
     Dosage: 10 MG, DAILY
     Route: 048
     Dates: start: 20130617
  5. THERALENE [Concomitant]
     Dosage: 5 MG, DAILY
     Route: 048
  6. LYSANXIA [Concomitant]
     Indication: MAJOR DEPRESSION
     Dosage: 10 MG, DAILY
     Route: 048
     Dates: start: 20130617

REACTIONS (8)
  - Suicide attempt [Unknown]
  - Phlebotomy [Unknown]
  - Tendon rupture [Unknown]
  - Grand mal convulsion [Unknown]
  - Hyponatraemia [Recovered/Resolved]
  - Hypokalaemia [Unknown]
  - Drug withdrawal syndrome [Unknown]
  - Polydipsia [Unknown]
